FAERS Safety Report 11481949 (Version 1)
Quarter: 2015Q3

REPORT INFORMATION
  Report Type: Spontaneous
  Country: US (occurrence: US)
  Receive Date: 20150909
  Receipt Date: 20150909
  Transmission Date: 20151125
  Serious: Yes (Other)
  Sender: FDA-Public Use
  Company Number: US-JNJFOC-20150822986

PATIENT
  Age: 48 Year
  Sex: Male
  Weight: 88.45 kg

DRUGS (3)
  1. MENS ROGAINE EXTRA STRENGTH [Suspect]
     Active Substance: MINOXIDIL
     Route: 061
  2. MENS ROGAINE EXTRA STRENGTH [Suspect]
     Active Substance: MINOXIDIL
     Indication: ALOPECIA
     Dosage: 1/2 CAPFUL TWICE DAILY
     Route: 061
     Dates: end: 2015
  3. OMEPRAZOLE. [Concomitant]
     Active Substance: OMEPRAZOLE
     Indication: GASTRITIS
     Dosage: 1-2 WEEKLY AS NEEDED, 4 YEARS
     Route: 065

REACTIONS (10)
  - Syncope [Recovering/Resolving]
  - Dizziness [Recovering/Resolving]
  - Anxiety [Recovering/Resolving]
  - Drug withdrawal syndrome [Recovering/Resolving]
  - Abdominal pain upper [Recovering/Resolving]
  - Nausea [Recovering/Resolving]
  - Nervousness [Recovering/Resolving]
  - Hyperventilation [Recovering/Resolving]
  - Hypotension [Recovering/Resolving]
  - Feeling abnormal [Recovering/Resolving]

NARRATIVE: CASE EVENT DATE: 2015
